FAERS Safety Report 26154588 (Version 1)
Quarter: 2025Q4

REPORT INFORMATION
  Report Type: Spontaneous
  Country: US (occurrence: US)
  Receive Date: 20251215
  Receipt Date: 20251215
  Transmission Date: 20260118
  Serious: No
  Sender: AUROBINDO
  Company Number: US-AUROBINDO-AUR-APL-2025-036841

PATIENT
  Age: 65 Year
  Sex: Female

DRUGS (1)
  1. FEXOFENADINE\PSEUDOEPHEDRINE [Suspect]
     Active Substance: FEXOFENADINE\PSEUDOEPHEDRINE
     Indication: Product used for unknown indication
     Dosage: 1 DOSAGE FORM, DAILY
     Route: 061

REACTIONS (2)
  - Product dose omission issue [Unknown]
  - Product packaging difficult to open [Unknown]
